FAERS Safety Report 4994098-X (Version None)
Quarter: 2006Q2

REPORT INFORMATION
  Report Type: 
  Country: None (occurrence: None)
  Receive Date: 20060505
  Receipt Date: 20060426
  Transmission Date: 20061013
  Serious: Yes (Death, Hospitalization)
  Sender: FDA-Public Use
  Company Number: FR-ROCHE-445893

PATIENT
  Age: 39 Year
  Sex: Female

DRUGS (6)
  1. RIVOTRIL [Suspect]
     Indication: DRUG USE FOR UNKNOWN INDICATION
     Route: 048
     Dates: start: 20051031, end: 20051118
  2. LAROXYL [Suspect]
     Indication: DRUG USE FOR UNKNOWN INDICATION
     Route: 048
     Dates: start: 20051105, end: 20051118
  3. THERALENE [Suspect]
     Indication: DRUG USE FOR UNKNOWN INDICATION
     Dosage: THERALENE (EX 6,549 R.P.)
     Route: 048
     Dates: start: 20050928, end: 20051118
  4. TERCIAN [Suspect]
     Indication: DRUG USE FOR UNKNOWN INDICATION
     Route: 048
     Dates: start: 20051001, end: 20051118
  5. LEPTICUR [Suspect]
     Indication: DRUG USE FOR UNKNOWN INDICATION
     Route: 048
     Dates: start: 20051025, end: 20051118
  6. DEPAMIDE [Suspect]
     Indication: DRUG USE FOR UNKNOWN INDICATION
     Route: 048
     Dates: start: 20051114, end: 20051118

REACTIONS (1)
  - MEGACOLON [None]
